FAERS Safety Report 24965757 (Version 1)
Quarter: 2025Q1

REPORT INFORMATION
  Report Type: Spontaneous
  Country: US (occurrence: None)
  Receive Date: 20250212
  Receipt Date: 20250212
  Transmission Date: 20250409
  Serious: Yes (Hospitalization)
  Sender: FDA-CTU
  Company Number: None

PATIENT
  Age: 86 Year
  Sex: Male
  Weight: 97 kg

DRUGS (1)
  1. AMOXICILLIN TRIHYDRATE [Suspect]
     Active Substance: AMOXICILLIN
     Indication: Tooth extraction
     Dates: end: 20240626

REACTIONS (4)
  - Meningitis aseptic [None]
  - Delirium [None]
  - Disorientation [None]
  - White blood cell count decreased [None]

NARRATIVE: CASE EVENT DATE: 20240704
